FAERS Safety Report 19995711 (Version 1)
Quarter: 2021Q4

REPORT INFORMATION
  Report Type: Report from Study
  Country: IN (occurrence: IN)
  Receive Date: 20211026
  Receipt Date: 20211026
  Transmission Date: 20220303
  Serious: Yes (Hospitalization)
  Sender: FDA-Public Use
  Company Number: IN-NOVARTISPH-NVSC2021IN241099

PATIENT
  Age: 66 Year
  Sex: Female

DRUGS (3)
  1. RIBOCICLIB [Suspect]
     Active Substance: RIBOCICLIB
     Indication: Breast cancer metastatic
     Dosage: 600 MG, QD
     Route: 065
     Dates: start: 20210201
  2. RIBOCICLIB [Suspect]
     Active Substance: RIBOCICLIB
     Dosage: 400 MG, QD
     Route: 065
     Dates: end: 20210925
  3. RIBOCICLIB [Suspect]
     Active Substance: RIBOCICLIB
     Dosage: 400 MG, QD
     Route: 065
     Dates: start: 20211002

REACTIONS (1)
  - Blood potassium increased [Recovered/Resolved]

NARRATIVE: CASE EVENT DATE: 20210925
